FAERS Safety Report 6246666-5 (Version None)
Quarter: 2009Q2

REPORT INFORMATION
  Report Type: 
  Country: None (occurrence: None)
  Receive Date: 20090624
  Receipt Date: 20090624
  Transmission Date: 20091009
  Serious: Yes (Other)
  Sender: FDA-Public Use
  Company Number: None

PATIENT
  Age: 53 Year
  Sex: Female
  Weight: 56.246 kg

DRUGS (1)
  1. IMITREX [Suspect]
     Indication: MIGRAINE WITHOUT AURA
     Dosage: ONE TAB AT HEADACHE ONSET 2 IN 24 HR PERIOD PO
     Route: 048
     Dates: start: 20090505, end: 20090506

REACTIONS (2)
  - CHEST DISCOMFORT [None]
  - DYSPNOEA [None]
